FAERS Safety Report 13861075 (Version 1)
Quarter: 2017Q3

REPORT INFORMATION
  Report Type: Spontaneous
  Country: AT (occurrence: AT)
  Receive Date: 20170811
  Receipt Date: 20170811
  Transmission Date: 20171127
  Serious: Yes (Other)
  Sender: FDA-Public Use
  Company Number: AT-BAYER-2017-153448

PATIENT
  Age: 46 Year
  Sex: Male
  Weight: 80 kg

DRUGS (2)
  1. GADOVIST [Suspect]
     Active Substance: GADOBUTROL
     Indication: NUCLEAR MAGNETIC RESONANCE IMAGING
     Dosage: 8 ML, ONCE
     Route: 042
     Dates: start: 20170725, end: 20170725
  2. GADOVIST [Suspect]
     Active Substance: GADOBUTROL
     Indication: PROSTATIC DISORDER

REACTIONS (2)
  - Extrasystoles [Recovered/Resolved]
  - Dizziness [Recovered/Resolved]

NARRATIVE: CASE EVENT DATE: 20170725
